FAERS Safety Report 8436823-1 (Version None)
Quarter: 2012Q2

REPORT INFORMATION
  Report Type: 
  Country: None (occurrence: None)
  Receive Date: 20120611
  Receipt Date: 20120611
  Transmission Date: 20120825
  Serious: Yes (Hospitalization, Other)
  Sender: FDA-Public Use
  Company Number: None

PATIENT
  Age: 67 Year
  Sex: Female
  Weight: 62.1428 kg

DRUGS (1)
  1. WARFARIN SODIUM [Suspect]
     Indication: DEEP VEIN THROMBOSIS
     Dosage: 5 MG. 1  1/ 1/2  ORAL; 5 MG 1 X DAY  4/20 TO PRESENT
     Route: 048
     Dates: start: 20120420

REACTIONS (10)
  - OEDEMA PERIPHERAL [None]
  - HYPOAESTHESIA [None]
  - ANURIA [None]
  - CONSTIPATION [None]
  - RENAL DISORDER [None]
  - DIZZINESS [None]
  - LOSS OF CONSCIOUSNESS [None]
  - PARAESTHESIA [None]
  - BACK PAIN [None]
  - PERIPHERAL COLDNESS [None]
